FAERS Safety Report 6027318-3 (Version None)
Quarter: 2009Q1

REPORT INFORMATION
  Report Type: 
  Country: None (occurrence: None)
  Receive Date: 20090105
  Receipt Date: 20081223
  Transmission Date: 20090719
  Serious: Yes (Death)
  Sender: FDA-Public Use
  Company Number: B0515294A

PATIENT
  Age: 65 Year
  Sex: Male

DRUGS (3)
  1. ARIXTRA [Suspect]
     Indication: PULMONARY EMBOLISM
     Dosage: 7.5MG PER DAY
     Route: 058
     Dates: start: 20080301, end: 20080301
  2. ANTIBIOTICS [Concomitant]
  3. INHALER [Concomitant]

REACTIONS (2)
  - DEATH [None]
  - RETROPERITONEAL HAEMORRHAGE [None]
